FAERS Safety Report 5807769-X (Version None)
Quarter: 2008Q3

REPORT INFORMATION
  Report Type: 
  Country: None (occurrence: None)
  Receive Date: 20080711
  Receipt Date: 20080701
  Transmission Date: 20090109
  Serious: Yes (Other)
  Sender: FDA-Public Use
  Company Number: US-PFIZER INC-2008055134

PATIENT
  Sex: Female
  Weight: 59 kg

DRUGS (9)
  1. AROMASIN [Suspect]
     Indication: BREAST CANCER METASTATIC
     Route: 048
  2. TEMAZEPAM [Suspect]
     Indication: INSOMNIA
  3. PASSIFLORA INCARNATA [Concomitant]
  4. VALERIAN ROOT [Concomitant]
  5. MELATONIN [Concomitant]
  6. BENADRYL CHILDRENS ALLERGY/COLD [Concomitant]
  7. HYDROCORTISONE [Concomitant]
     Dosage: FREQ:AT NIGHT
     Route: 061
  8. MAGNESIUM STEARATE [Concomitant]
  9. HOPS [Concomitant]

REACTIONS (3)
  - ARTHRALGIA [None]
  - PRURITUS [None]
  - WEIGHT INCREASED [None]
